FAERS Safety Report 6136261-0 (Version None)
Quarter: 2009Q1

REPORT INFORMATION
  Report Type: 
  Country: None (occurrence: None)
  Receive Date: 20090330
  Receipt Date: 20090323
  Transmission Date: 20090719
  Serious: Yes (Hospitalization)
  Sender: FDA-Public Use
  Company Number: US-BIOGENIDEC-2009BI005672

PATIENT
  Age: 52 Year
  Sex: Female
  Weight: 79 kg

DRUGS (2)
  1. AVONEX [Suspect]
     Indication: MULTIPLE SCLEROSIS
     Route: 030
     Dates: start: 20030101
  2. AVONEX [Suspect]
     Route: 030
     Dates: start: 19980101, end: 20030101

REACTIONS (6)
  - ABASIA [None]
  - AGRAPHIA [None]
  - APHASIA [None]
  - INJECTION SITE HAEMATOMA [None]
  - INTRACRANIAL ANEURYSM [None]
  - READING DISORDER [None]
